FAERS Safety Report 7532669-7 (Version None)
Quarter: 2011Q2

REPORT INFORMATION
  Report Type: 
  Country: None (occurrence: None)
  Receive Date: 20110608
  Receipt Date: 20110524
  Transmission Date: 20111010
  Serious: Yes (Hospitalization)
  Sender: FDA-Public Use
  Company Number: A0789084A

PATIENT
  Age: 59 Year
  Sex: Male
  Weight: 90.9 kg

DRUGS (16)
  1. ALBUTEROL SULFATE AUTOHALER [Concomitant]
  2. STARLIX [Concomitant]
  3. LOPERAMIDE [Concomitant]
  4. METFORMIN HCL [Concomitant]
  5. NORVASC [Concomitant]
  6. PERSANTINE [Concomitant]
  7. LANTUS [Concomitant]
  8. ASPIRIN [Concomitant]
  9. AMARYL [Concomitant]
  10. BISOPROLOL FUMARATE AND HYDROCHLOROTHIAZIDE [Concomitant]
  11. LASIX [Concomitant]
  12. AVANDIA [Suspect]
     Indication: DIABETES MELLITUS
     Dosage: 4MG PER DAY
     Route: 048
     Dates: start: 20000401, end: 20070523
  13. LANOXIN [Concomitant]
  14. ZOCOR [Concomitant]
  15. GLUCOPHAGE [Concomitant]
  16. VYTORIN [Concomitant]

REACTIONS (4)
  - MYOCARDIAL INFARCTION [None]
  - CORONARY ARTERY DISEASE [None]
  - CEREBRAL INFARCTION [None]
  - MYOCARDIAL ISCHAEMIA [None]
